FAERS Safety Report 5489423-X (Version None)
Quarter: 2007Q4

REPORT INFORMATION
  Report Type: 
  Country: None (occurrence: None)
  Receive Date: 20071018
  Receipt Date: 20071015
  Transmission Date: 20080405
  Serious: Yes (Death)
  Sender: FDA-Public Use
  Company Number: US-JNJFOC-20070904087

PATIENT
  Sex: Male
  Weight: 88.45 kg

DRUGS (23)
  1. RISPERDAL CONSTA [Suspect]
     Route: 030
  2. RISPERDAL CONSTA [Suspect]
     Indication: PSYCHOTIC DISORDER
     Route: 030
  3. RISPERDAL CONSTA [Suspect]
     Indication: SCHIZOPHRENIA
     Route: 030
  4. RISPERDAL [Suspect]
     Route: 048
  5. RISPERDAL [Suspect]
     Route: 048
  6. RISPERDAL [Suspect]
     Route: 048
  7. RISPERDAL [Suspect]
     Indication: SCHIZOPHRENIA
     Route: 048
  8. ARTANE [Concomitant]
     Indication: DRUG USE FOR UNKNOWN INDICATION
     Route: 048
  9. TRAZODONE HCL [Concomitant]
     Indication: DRUG USE FOR UNKNOWN INDICATION
     Route: 048
  10. OMEPRAZOLE [Concomitant]
     Indication: DRUG USE FOR UNKNOWN INDICATION
     Route: 048
  11. TRIHEXYPHENIDYL HCL [Concomitant]
     Indication: EXTRAPYRAMIDAL DISORDER
  12. SIMVASTATIN [Concomitant]
     Indication: DRUG USE FOR UNKNOWN INDICATION
  13. SERTRALINE [Concomitant]
     Indication: DRUG USE FOR UNKNOWN INDICATION
  14. SENNOSIDES [Concomitant]
     Indication: CONSTIPATION
  15. RANITIDINE HCL [Concomitant]
     Indication: DRUG USE FOR UNKNOWN INDICATION
  16. OMEPRAZOLE [Concomitant]
  17. LEVOTHYROXINE SODIUM [Concomitant]
     Indication: DRUG USE FOR UNKNOWN INDICATION
  18. IBUPROFEN [Concomitant]
     Indication: PAIN
  19. GEMFIBROZIL [Concomitant]
     Indication: DRUG USE FOR UNKNOWN INDICATION
  20. DIVALPROEX ER (SA) [Concomitant]
     Indication: DRUG USE FOR UNKNOWN INDICATION
  21. ATENOLOL [Concomitant]
     Indication: DRUG USE FOR UNKNOWN INDICATION
  22. ASPIRIN [Concomitant]
     Indication: DRUG USE FOR UNKNOWN INDICATION
  23. CLOZAPINE [Concomitant]
     Indication: PSYCHOTIC DISORDER

REACTIONS (7)
  - ANGER [None]
  - COMPLETED SUICIDE [None]
  - DRUG LEVEL BELOW THERAPEUTIC [None]
  - IRRITABILITY [None]
  - MEDICATION ERROR [None]
  - PARANOIA [None]
  - PSYCHOTIC DISORDER [None]
